FAERS Safety Report 16197939 (Version 2)
Quarter: 2019Q2

REPORT INFORMATION
  Report Type: Spontaneous
  Country: US (occurrence: US)
  Receive Date: 20190415
  Receipt Date: 20190520
  Transmission Date: 20190711
  Serious: No
  Sender: FDA-Public Use
  Company Number: US-PFIZER INC-2019161016

PATIENT
  Age: 47 Year
  Sex: Female

DRUGS (1)
  1. XELJANZ XR [Suspect]
     Active Substance: TOFACITINIB CITRATE
     Indication: RHEUMATOID ARTHRITIS
     Dosage: 11 MG, 1X/DAY
     Dates: end: 2019

REACTIONS (4)
  - Dysphonia [Recovered/Resolved]
  - Seasonal allergy [Recovered/Resolved]
  - Nasal congestion [Recovered/Resolved]
  - Drug hypersensitivity [Recovered/Resolved]
